FAERS Safety Report 5889708-9 (Version None)
Quarter: 2008Q3

REPORT INFORMATION
  Report Type: 
  Country: None (occurrence: None)
  Receive Date: 20080919
  Receipt Date: 20080912
  Transmission Date: 20090109
  Serious: Yes (Hospitalization)
  Sender: FDA-Public Use
  Company Number: JP-JNJFOC-20080901086

PATIENT
  Sex: Female
  Weight: 45 kg

DRUGS (7)
  1. RISPERDAL [Suspect]
     Indication: SENILE PSYCHOSIS
     Route: 048
  2. NORVASC [Concomitant]
     Indication: HYPERTENSION
     Route: 048
  3. ASPIRIN [Concomitant]
     Indication: ANGINA PECTORIS
     Route: 048
  4. LENDORMIN [Concomitant]
     Indication: SENILE PSYCHOSIS
     Route: 048
  5. KAMAG G [Concomitant]
     Route: 048
  6. KAMAG G [Concomitant]
     Indication: CONSTIPATION
     Route: 048
  7. BENZALIN [Concomitant]
     Indication: SENILE PSYCHOSIS
     Route: 048

REACTIONS (2)
  - BLISTER [None]
  - PAIN [None]
